FAERS Safety Report 6886497-6 (Version None)
Quarter: 2010Q3

REPORT INFORMATION
  Report Type: 
  Country: None (occurrence: None)
  Receive Date: 20100730
  Receipt Date: 20100722
  Transmission Date: 20110219
  Serious: Yes (Hospitalization)
  Sender: FDA-Public Use
  Company Number: -BIOGENIDEC-2010BI024679

PATIENT
  Age: 67 Year
  Sex: Female

DRUGS (1)
  1. TYSABRI [Suspect]
     Indication: MULTIPLE SCLEROSIS
     Route: 042
     Dates: start: 20090310

REACTIONS (4)
  - HAEMOGLOBIN ABNORMAL [None]
  - MULTIPLE SCLEROSIS RELAPSE [None]
  - RESPIRATORY FAILURE [None]
  - UROSEPSIS [None]
